FAERS Safety Report 20604839 (Version 3)
Quarter: 2022Q2

REPORT INFORMATION
  Report Type: Spontaneous
  Country: US (occurrence: US)
  Receive Date: 20220317
  Receipt Date: 20220518
  Transmission Date: 20220720
  Serious: Yes (Death, Hospitalization)
  Sender: FDA-Public Use
  Company Number: US-JNJFOC-20220321608

PATIENT
  Age: 73 Year
  Sex: Male
  Weight: 63.9 kg

DRUGS (1)
  1. DARZALEX FASPRO [Suspect]
     Active Substance: DARATUMUMAB\HYALURONIDASE-FIHJ
     Indication: Plasma cell myeloma
     Dosage: WEEKLY C1D15 TO C2,   C3 - D1, D8, D15, C 4-6 , C7+ D1?LAST DOSE WAS ON 19-JAN-2022
     Route: 058

REACTIONS (8)
  - Death [Fatal]
  - Muscular weakness [Unknown]
  - Contusion [Unknown]
  - Tremor [Not Recovered/Not Resolved]
  - Disorientation [Not Recovered/Not Resolved]
  - Somnolence [Unknown]
  - Confusional state [Unknown]
  - Hyperreflexia [Unknown]

NARRATIVE: CASE EVENT DATE: 20220126
